FAERS Safety Report 7494663-4 (Version None)
Quarter: 2011Q2

REPORT INFORMATION
  Report Type: 
  Country: None (occurrence: None)
  Receive Date: 20110520
  Receipt Date: 20110517
  Transmission Date: 20111010
  Serious: Yes (Hospitalization, Other)
  Sender: FDA-Public Use
  Company Number: US-ABBOTT-11P-163-0695135-00

PATIENT
  Sex: Female
  Weight: 69.008 kg

DRUGS (14)
  1. WELLBUTRIN [Concomitant]
     Indication: EX-TOBACCO USER
  2. VICODIN [Concomitant]
     Indication: BONE PAIN
     Dosage: 5/500MG, 2-6 TABS DAILY
  3. HUMIRA [Suspect]
     Indication: CROHN'S DISEASE
     Dosage: ONLY TOOK THE LOADING DOSE
     Dates: start: 20101215, end: 20101224
  4. MELPHALAN HYDROCHLORIDE [Concomitant]
     Indication: CROHN'S DISEASE
     Dosage: TAPERING
  5. XANAX [Concomitant]
     Indication: NERVOUSNESS
  6. MULTI-VITAMIN [Concomitant]
     Indication: PRODUCT USED FOR UNKNOWN INDICATION
  7. TEMAZ [Concomitant]
     Indication: PRODUCT USED FOR UNKNOWN INDICATION
  8. IMODIUM [Concomitant]
     Indication: DIARRHOEA
  9. ADVAIR DISKUS 100/50 [Concomitant]
     Indication: PRODUCT USED FOR UNKNOWN INDICATION
  10. HUMIRA [Suspect]
     Dates: start: 20101231
  11. VITAMIN B-12 [Concomitant]
     Indication: PRODUCT USED FOR UNKNOWN INDICATION
  12. NICOTINE PATCH [Concomitant]
     Indication: EX-TOBACCO USER
  13. VITAMIN B [Concomitant]
     Indication: PRODUCT USED FOR UNKNOWN INDICATION
  14. VITAMIN D [Concomitant]
     Indication: PRODUCT USED FOR UNKNOWN INDICATION

REACTIONS (21)
  - BRONCHOPNEUMONIA [None]
  - NEPHROLITHIASIS [None]
  - FATIGUE [None]
  - RESPIRATORY TRACT INFECTION [None]
  - WHEEZING [None]
  - RESPIRATORY TRACT CONGESTION [None]
  - PRODUCTIVE COUGH [None]
  - PYREXIA [None]
  - COUGH [None]
  - CROHN'S DISEASE [None]
  - OSTEOPOROSIS [None]
  - ASTHENIA [None]
  - OXYGEN SATURATION DECREASED [None]
  - BRONCHITIS [None]
  - ANXIETY [None]
  - OSTEOARTHRITIS [None]
  - TOBACCO ABUSE [None]
  - OEDEMA PERIPHERAL [None]
  - DYSPNOEA [None]
  - BRONCHOSPASM [None]
  - CHEST PAIN [None]
